FAERS Safety Report 5759864-1 (Version None)
Quarter: 2008Q2

REPORT INFORMATION
  Report Type: 
  Country: None (occurrence: None)
  Receive Date: 20080605
  Receipt Date: 20080523
  Transmission Date: 20081010
  Serious: Yes (Other)
  Sender: FDA-Public Use
  Company Number: US-PFIZER INC-2005064982

PATIENT
  Sex: Male
  Weight: 103.4 kg

DRUGS (5)
  1. VIAGRA [Suspect]
     Indication: ERECTILE DYSFUNCTION
  2. VERAPAMIL HYDROCHLORIDE [Suspect]
     Indication: PEYRONIE'S DISEASE
     Route: 061
  3. LISINOPRIL [Concomitant]
  4. ORGANIC NITRATES [Concomitant]
  5. HYDRODIURIL [Concomitant]

REACTIONS (8)
  - BLOOD PRESSURE DIASTOLIC DECREASED [None]
  - DRUG INEFFECTIVE [None]
  - FLUSHING [None]
  - NASAL CONGESTION [None]
  - PENILE SIZE REDUCED [None]
  - PENIS DISORDER [None]
  - PEYRONIE'S DISEASE [None]
  - SINUS HEADACHE [None]
